FAERS Safety Report 6232884-9 (Version None)
Quarter: 2009Q2

REPORT INFORMATION
  Report Type: 
  Country: None (occurrence: None)
  Receive Date: 20090612
  Receipt Date: 20090612
  Transmission Date: 20091009
  Serious: Yes (Hospitalization)
  Sender: FDA-Public Use
  Company Number: None

PATIENT
  Sex: Female
  Weight: 63.5036 kg

DRUGS (1)
  1. XANAX [Suspect]

REACTIONS (9)
  - COW'S MILK INTOLERANCE [None]
  - DIZZINESS [None]
  - DYSGRAPHIA [None]
  - FATIGUE [None]
  - FOOD INTOLERANCE [None]
  - HEPATIC PAIN [None]
  - IMPAIRED DRIVING ABILITY [None]
  - MENTAL IMPAIRMENT [None]
  - MOVEMENT DISORDER [None]
